FAERS Safety Report 23729032 (Version 1)
Quarter: 2024Q2

REPORT INFORMATION
  Report Type: Spontaneous
  Country: US (occurrence: US)
  Receive Date: 20240410
  Receipt Date: 20240410
  Transmission Date: 20240716
  Serious: No
  Sender: FDA-Public Use
  Company Number: US-BRISTOL-MYERS SQUIBB COMPANY-2024-056793

PATIENT
  Age: 45 Year
  Sex: Male

DRUGS (3)
  1. ZEPOSIA [Suspect]
     Active Substance: OZANIMOD HYDROCHLORIDE
     Indication: Colitis ulcerative
     Dosage: FREQUENCY: TAKE 0.23 MG BY MOUTH 1 TIME A DAY FOR 4 DAYS, THEN TAKE 0.46 MG 1 TIME A DAY FOR 3 DAYS,
     Route: 048
     Dates: start: 202403
  2. ZEPOSIA [Suspect]
     Active Substance: OZANIMOD HYDROCHLORIDE
     Dosage: FREQUENCY: TAKE 0.46 MG 1 TIME A DAY FOR 3 DAYS
     Route: 048
  3. ZEPOSIA [Suspect]
     Active Substance: OZANIMOD HYDROCHLORIDE
     Dosage: FREQUENCY: TAKE 0.92 MG 1 TIME A DAY.
     Route: 048

REACTIONS (1)
  - Lacrimation increased [Unknown]
